FAERS Safety Report 18668448 (Version 1)
Quarter: 2020Q4

REPORT INFORMATION
  Report Type: Spontaneous
  Country: US (occurrence: US)
  Receive Date: 20201225
  Receipt Date: 20201225
  Transmission Date: 20210114
  Serious: No
  Sender: FDA-Public Use
  Company Number: None

PATIENT
  Age: 68 Year
  Sex: Male
  Weight: 66.6 kg

DRUGS (5)
  1. METOPROLOL SUCCINATE 50 MG [Concomitant]
     Active Substance: METOPROLOL SUCCINATE
  2. MULTI-VITAMIN MINERAL SUPPLEMENT [Concomitant]
     Active Substance: MINERALS\VITAMINS
  3. ASPIRIN 81MG [Concomitant]
     Active Substance: ASPIRIN
  4. PREVIDENT GEL 1.1% SODIUM FLUORIDE [Concomitant]
  5. TAMSULOSIN HYDROCHLORIDE 0.4MG CAP SANO GENERIC FOR FLOMAX 0.4MG [Suspect]
     Active Substance: TAMSULOSIN HYDROCHLORIDE
     Indication: BENIGN PROSTATIC HYPERPLASIA
     Dosage: ?          QUANTITY:1 CAPSULE(S);?
     Route: 048
     Dates: start: 20201026, end: 20201201

REACTIONS (1)
  - Tinnitus [None]

NARRATIVE: CASE EVENT DATE: 20201026
